FAERS Safety Report 7973536-4 (Version None)
Quarter: 2011Q4

REPORT INFORMATION
  Report Type: 
  Country: None (occurrence: None)
  Receive Date: 20111202
  Receipt Date: 20111123
  Transmission Date: 20120403
  Serious: Yes (Hospitalization)
  Sender: FDA-Public Use
  Company Number: 2011SP055046

PATIENT
  Age: 25 Year
  Sex: Female

DRUGS (1)
  1. NUVARING [Suspect]
     Dosage: VAG
     Route: 067
     Dates: start: 20110915, end: 20111019

REACTIONS (7)
  - HAEMORRHAGE [None]
  - ABDOMINAL PAIN UPPER [None]
  - EYELID OEDEMA [None]
  - DYSPNOEA [None]
  - HYPERSENSITIVITY [None]
  - VULVOVAGINAL DRYNESS [None]
  - SWELLING FACE [None]
